APPROVED DRUG PRODUCT: LOCOID
Active Ingredient: HYDROCORTISONE BUTYRATE
Strength: 0.1%
Dosage Form/Route: CREAM;TOPICAL
Application: N018795 | Product #001
Applicant: YAMANOUCHI EUROPE BV
Approved: Jan 7, 1983 | RLD: No | RS: No | Type: DISCN